FAERS Safety Report 7236453-3 (Version None)
Quarter: 2011Q1

REPORT INFORMATION
  Report Type: 
  Country: None (occurrence: None)
  Receive Date: 20110120
  Receipt Date: 20110114
  Transmission Date: 20110831
  Serious: Yes (Other)
  Sender: FDA-Public Use
  Company Number: FR-BAXTER-2010BH030660

PATIENT
  Age: 65 Year
  Sex: Male

DRUGS (11)
  1. CYCLOPHOSPHAMIDE [Suspect]
     Indication: NEUROENDOCRINE CARCINOMA OF THE SKIN
     Route: 042
     Dates: start: 20101118
  2. CELLCEPT [Suspect]
     Indication: PRODUCT USED FOR UNKNOWN INDICATION
     Route: 048
  3. VINCRISTINE SULFATE [Suspect]
     Indication: NEUROENDOCRINE CARCINOMA OF THE SKIN
     Route: 042
     Dates: start: 20101118
  4. MESNA [Suspect]
     Indication: NEUROENDOCRINE CARCINOMA OF THE SKIN
     Route: 065
     Dates: start: 20101118
  5. XATRAL                                  /FRA/ [Concomitant]
     Indication: PRODUCT USED FOR UNKNOWN INDICATION
     Route: 065
  6. DOXORUBICIN GENERIC [Suspect]
     Indication: NEUROENDOCRINE CARCINOMA OF THE SKIN
     Route: 042
     Dates: start: 20101118
  7. MORPHINE SULFATE [Concomitant]
     Indication: PRODUCT USED FOR UNKNOWN INDICATION
     Route: 065
  8. SOLU-MEDROL [Suspect]
     Indication: NEUROENDOCRINE CARCINOMA OF THE SKIN
     Route: 065
     Dates: start: 20101118
  9. RAPAMUNE [Suspect]
     Indication: PRODUCT USED FOR UNKNOWN INDICATION
     Route: 048
  10. SETRON [Suspect]
     Indication: NEUROENDOCRINE CARCINOMA OF THE SKIN
     Route: 065
     Dates: start: 20101118
  11. TAREG [Concomitant]
     Indication: PRODUCT USED FOR UNKNOWN INDICATION
     Route: 065

REACTIONS (2)
  - HERPES ZOSTER [None]
  - SKIN NECROSIS [None]
